FAERS Safety Report 12539410 (Version 1)
Quarter: 2016Q3

REPORT INFORMATION
  Report Type: Spontaneous
  Country: JP (occurrence: JP)
  Receive Date: 20160708
  Receipt Date: 20160708
  Transmission Date: 20161109
  Serious: Yes (Other)
  Sender: FDA-Public Use
  Company Number: JP-009507513-1607JPN002184

PATIENT

DRUGS (4)
  1. RIBAVIRIN. [Suspect]
     Active Substance: RIBAVIRIN
     Indication: HEPATITIS C
     Dosage: 400-1000 MG DAILY, BASED ON BODY WEIGHT
     Route: 048
  2. PEGINTERFERON ALFA-2A [Suspect]
     Active Substance: PEGINTERFERON ALFA-2A
     Indication: HEPATITIS C
     Dosage: 180 MICROGRAM WEEKLY
     Route: 058
  3. PEGINTERFERON ALFA-2B [Suspect]
     Active Substance: PEGINTERFERON ALFA-2B
     Indication: HEPATITIS C
     Dosage: 1.0-1.5 MCG/KG WEEKLY
     Route: 058
  4. SIMEPREVIR [Suspect]
     Active Substance: SIMEPREVIR
     Indication: HEPATITIS C
     Dosage: 100 MG/DAY
     Route: 048

REACTIONS (5)
  - Jaundice [Unknown]
  - Alanine aminotransferase increased [Unknown]
  - Mental disorder [Unknown]
  - Virologic failure [Unknown]
  - Upper gastrointestinal haemorrhage [Unknown]
